FAERS Safety Report 10427913 (Version 2)
Quarter: 2014Q3

REPORT INFORMATION
  Report Type: Report from Study
  Country: FR (occurrence: FR)
  Receive Date: 20140903
  Receipt Date: 20140909
  Transmission Date: 20150326
  Serious: Yes (Death)
  Sender: FDA-Public Use
  Company Number: FR-SHIRE-FR201405492

PATIENT
  Sex: Male

DRUGS (2)
  1. IDURSULFASE [Suspect]
     Active Substance: IDURSULFASE
     Dosage: UNK UNK, UNKNOWN
     Route: 041
  2. IDURSULFASE [Suspect]
     Active Substance: IDURSULFASE
     Indication: MUCOPOLYSACCHARIDOSIS II
     Dosage: 0.46 MG/KG, 1X/WEEK
     Route: 041
     Dates: start: 20061212

REACTIONS (1)
  - Respiratory failure [Fatal]
